FAERS Safety Report 9477998 (Version 1)
Quarter: 2013Q3

REPORT INFORMATION
  Report Type: Report from Study
  Country: BR (occurrence: BR)
  Receive Date: 20130827
  Receipt Date: 20130827
  Transmission Date: 20140515
  Serious: Yes (Other)
  Sender: FDA-Public Use
  Company Number: PHHY2013BR091551

PATIENT
  Age: 64 Year
  Sex: Male

DRUGS (6)
  1. MYFORTIC [Suspect]
     Dosage: UNK UKN, UNK
     Route: 048
  2. EVEROLIMUS [Suspect]
     Dosage: UNK UKN, UNK
     Dates: start: 201211
  3. TACROLIMUS [Suspect]
     Indication: RENAL TRANSPLANT
     Dosage: 0.15 MG/KG/DAY
  4. AZATHIOPRINE [Concomitant]
     Indication: RENAL TRANSPLANT
     Dosage: 100 MG PER DAY
  5. PREDNISONE [Concomitant]
     Indication: RENAL TRANSPLANT
     Dosage: UNK UKN, UNK
  6. SIROLIMUS [Concomitant]
     Indication: RENAL TRANSPLANT
     Dosage: UNK UKN, UNK
     Dates: start: 200805

REACTIONS (3)
  - Haematuria [Unknown]
  - Renal impairment [Unknown]
  - Immunosuppressant drug level increased [Unknown]
